FAERS Safety Report 7589435-6 (Version None)
Quarter: 2011Q3

REPORT INFORMATION
  Report Type: 
  Country: None (occurrence: None)
  Receive Date: 20110705
  Receipt Date: 20110620
  Transmission Date: 20111222
  Serious: Yes (Other)
  Sender: FDA-Public Use
  Company Number: NL-JNJFOC-20110612346

PATIENT
  Sex: Male

DRUGS (1)
  1. REMICADE [Suspect]
     Indication: PRODUCT USED FOR UNKNOWN INDICATION
     Route: 042
     Dates: start: 20110601, end: 20110603

REACTIONS (7)
  - ANGIOEDEMA [None]
  - CHEST PAIN [None]
  - FACIAL PAIN [None]
  - PRURITUS [None]
  - ERYTHEMA [None]
  - SWELLING [None]
  - NECK PAIN [None]
